FAERS Safety Report 19079478 (Version 1)
Quarter: 2021Q1

REPORT INFORMATION
  Report Type: Spontaneous
  Country: GB (occurrence: GB)
  Receive Date: 20210331
  Receipt Date: 20210331
  Transmission Date: 20210420
  Serious: Yes (Life-Threatening, Hospitalization, Other)
  Sender: FDA-Public Use
  Company Number: GB-VALIDUS PHARMACEUTICALS LLC-GB-2021VAL000340

PATIENT
  Age: 43 Year
  Sex: Female

DRUGS (3)
  1. QUETIAPINE FUMARATE. [Suspect]
     Active Substance: QUETIAPINE FUMARATE
     Indication: SCHIZOAFFECTIVE DISORDER
     Route: 048
  2. FUROSEMIDE. [Suspect]
     Active Substance: FUROSEMIDE
     Indication: PRODUCT USED FOR UNKNOWN INDICATION
  3. HYDRALAZINE [Concomitant]
     Active Substance: HYDRALAZINE HYDROCHLORIDE
     Indication: PRODUCT USED FOR UNKNOWN INDICATION

REACTIONS (13)
  - Peripartum cardiomyopathy [Unknown]
  - Cardiomegaly [Unknown]
  - Mitral valve incompetence [Unknown]
  - Left ventricular dilatation [Unknown]
  - Ejection fraction decreased [Unknown]
  - Tricuspid valve incompetence [Unknown]
  - Maternal exposure during pregnancy [Unknown]
  - Cardiac murmur [Recovered/Resolved]
  - Right atrial dilatation [Unknown]
  - Pulseless electrical activity [Unknown]
  - Left atrial dilatation [Unknown]
  - Abdominal pain [Unknown]
  - Ventricular tachycardia [Unknown]
